FAERS Safety Report 8623210 (Version 2)
Quarter: 2012Q4

REPORT INFORMATION
  Report Type: 
  Country: US (occurrence: US)
  Receive Date: 20120620
  Receipt Date: 20121023
  Transmission Date: 20130627
  Serious: Yes (Life-Threatening, Hospitalization, Other)
  Sender: FDA-Public Use
  Company Number: US-ELI_LILLY_AND_COMPANY-US201206002957

PATIENT
  Sex: Female

DRUGS (7)
  1. CYMBALTA [Suspect]
     Dosage: 20 mg, bid
     Route: 065
     Dates: start: 20101028, end: 201205
  2. XANAX [Concomitant]
  3. BYSTOLIC [Concomitant]
  4. SYNTHROID [Concomitant]
  5. TRAZODONE [Concomitant]
  6. OXYCODONE [Concomitant]
  7. CYMBALTA [Suspect]
     Indication: FIBROMYALGIA
     Dosage: 20 mg, qd
     Route: 065

REACTIONS (27)
  - Resuscitation [Unknown]
  - Respiratory depression [Unknown]
  - Loss of consciousness [Unknown]
  - Loss of consciousness [Unknown]
  - Blood glucose increased [Unknown]
  - Exfoliative rash [Not Recovered/Not Resolved]
  - Dreamy state [Unknown]
  - Amnesia [Unknown]
  - Rash generalised [Not Recovered/Not Resolved]
  - Fatigue [Unknown]
  - Feeling abnormal [Unknown]
  - Vomiting [Unknown]
  - Visual impairment [Unknown]
  - Mydriasis [Unknown]
  - Diarrhoea [Unknown]
  - Hypertension [Unknown]
  - Confusional state [Unknown]
  - Agitation [Unknown]
  - Chills [Not Recovered/Not Resolved]
  - Hyperhidrosis [Not Recovered/Not Resolved]
  - Hallucination [Unknown]
  - Sensation of heaviness [Unknown]
  - Sleep disorder [Unknown]
  - Nausea [Unknown]
  - Dizziness [Unknown]
  - Lip swelling [Unknown]
  - Dry skin [Unknown]
